FAERS Safety Report 7826856-8 (Version None)
Quarter: 2011Q4

REPORT INFORMATION
  Report Type: 
  Country: None (occurrence: None)
  Receive Date: 20111018
  Receipt Date: 20110922
  Transmission Date: 20120403
  Serious: Yes (Hospitalization)
  Sender: FDA-Public Use
  Company Number: USA/USA/11/0021538

PATIENT
  Age: 48 Year
  Sex: Female

DRUGS (9)
  1. COREG [Concomitant]
  2. LAMOTRIGINE [Suspect]
     Indication: DEPRESSION
     Dates: start: 20110101, end: 20110101
  3. COUMADIN [Concomitant]
  4. SYNTHROID [Concomitant]
  5. RAMIPRIL [Concomitant]
  6. CELEXA [Concomitant]
  7. LAMOTRGINE [Suspect]
     Indication: DEPRESSION
     Dosage: 100 MG, 1 IN 1 D, ORAL
     Route: 048
  8. SENNA PLUS (SENNA ALEXANDRINA) [Concomitant]
  9. COLACE (DOCUSATE SODIUM) [Concomitant]

REACTIONS (3)
  - DRUG RASH WITH EOSINOPHILIA AND SYSTEMIC SYMPTOMS [None]
  - DRUG PRESCRIBING ERROR [None]
  - SKIN EXFOLIATION [None]
